FAERS Safety Report 5957630-5 (Version None)
Quarter: 2008Q4

REPORT INFORMATION
  Report Type: 
  Country: None (occurrence: None)
  Receive Date: 20081119
  Receipt Date: 20081113
  Transmission Date: 20090506
  Serious: Yes (Hospitalization)
  Sender: FDA-Public Use
  Company Number: TW-BRISTOL-MYERS SQUIBB COMPANY-14373435

PATIENT
  Age: 28 Year
  Sex: Female

DRUGS (5)
  1. METFORMIN HCL [Suspect]
     Indication: WEIGHT CONTROL
     Dosage: APPROXIMATELY 80 TABLETS 500 MG (TOTAL DOSE OF 39.5G)
     Route: 048
  2. SODIUM BICARBONATE [Concomitant]
     Indication: ACIDOSIS
     Dosage: 1 DF = 1 MEQ/KG
     Route: 042
  3. CHARCOAL ACTIVATED [Concomitant]
     Route: 050
  4. SODIUM CHLORIDE [Concomitant]
     Indication: FLUID REPLACEMENT
     Dosage: 0.9% SODIUM CHLORIDE
     Route: 042
  5. GLUCOSE [Concomitant]
     Indication: HYPOGLYCAEMIA
     Dosage: 1 DOSAGE FORM = 1G/KG BODY WEIGHT
     Route: 042

REACTIONS (10)
  - AGITATION [None]
  - DISORIENTATION [None]
  - DRUG EXPOSURE DURING PREGNANCY [None]
  - HYPOGLYCAEMIA [None]
  - INTENTIONAL OVERDOSE [None]
  - LACTIC ACIDOSIS [None]
  - METABOLIC ACIDOSIS [None]
  - NORMAL NEWBORN [None]
  - PREGNANCY [None]
  - SUICIDE ATTEMPT [None]
